FAERS Safety Report 8772551 (Version 1)
Quarter: 2012Q4

REPORT INFORMATION
  Report Type: 
  Country: DE (occurrence: DE)
  Receive Date: 20120905
  Receipt Date: 20120905
  Transmission Date: 20130627
  Serious: Yes (Other)
  Sender: FDA-Public Use
  Company Number: DE-PFIZER INC-2012213460

PATIENT
  Age: 66 Year
  Sex: Female

DRUGS (2)
  1. LYRICA [Suspect]
     Indication: NEURALGIA
     Dosage: 75 mg, 2x/day (1-0-1)
     Dates: start: 2009
  2. EZETIMIBE/SIMVASTATIN [Concomitant]
     Dosage: UNK

REACTIONS (1)
  - Basal cell carcinoma [Unknown]
